FAERS Safety Report 12738391 (Version 1)
Quarter: 2016Q3

REPORT INFORMATION
  Report Type: Spontaneous
  Country: US (occurrence: US)
  Receive Date: 20160912
  Receipt Date: 20160912
  Transmission Date: 20161109
  Serious: No
  Sender: FDA-Public Use
  Company Number: US-SA-2016SA133755

PATIENT
  Age: 65 Year
  Sex: Female

DRUGS (4)
  1. SOLOSTAR [Concomitant]
     Active Substance: DEVICE
     Indication: TYPE 2 DIABETES MELLITUS
     Route: 065
     Dates: start: 2015
  2. TOUJEO [Suspect]
     Active Substance: INSULIN GLARGINE
     Indication: TYPE 2 DIABETES MELLITUS
     Dosage: DOSE:50 UNIT(S)
     Route: 051
     Dates: start: 2015
  3. LANTUS SOLOSTAR [Concomitant]
     Active Substance: INSULIN GLARGINE
     Dosage: DOSE:40 UNIT(S)
     Route: 065
     Dates: end: 2015
  4. SOLOSTAR [Concomitant]
     Active Substance: DEVICE
     Route: 065
     Dates: end: 2015

REACTIONS (2)
  - Thinking abnormal [Unknown]
  - Malaise [Unknown]
